FAERS Safety Report 5657822-9 (Version None)
Quarter: 2008Q1

REPORT INFORMATION
  Report Type: 
  Country: None (occurrence: None)
  Receive Date: 20080310
  Receipt Date: 20071010
  Transmission Date: 20080703
  Serious: Yes (Hospitalization, Other)
  Sender: FDA-Public Use
  Company Number: US-ASTRAZENECA-2007UW23510

PATIENT
  Age: 62 Year
  Sex: Male
  Weight: 91.2 kg

DRUGS (11)
  1. LISINOPRIL [Suspect]
     Indication: HYPERTENSION
     Route: 048
     Dates: start: 20070822
  2. METOPROLOL TARTRATE [Suspect]
     Indication: CORONARY ARTERY DISEASE
     Route: 048
     Dates: start: 20070822
  3. CANGRELOR VS PLACEBO (CODE NOT BROKEN) [Suspect]
     Indication: PERCUTANEOUS CORONARY INTERVENTION
     Route: 042
     Dates: start: 20070822, end: 20070822
  4. CANGRELOR VS PLACEBO (CODE NOT BROKEN) [Suspect]
     Route: 042
     Dates: start: 20070822, end: 20070822
  5. CLOPIDOGREL [Suspect]
     Indication: PERCUTANEOUS CORONARY INTERVENTION
     Dosage: 4 CAPSULES
     Route: 048
     Dates: start: 20070822
  6. CLOPIDOGREL [Suspect]
     Dosage: 4 CAPSULES
     Route: 048
     Dates: start: 20070822
  7. LORAZEPAM [Suspect]
     Indication: ANXIETY
     Route: 048
     Dates: start: 20070822
  8. MORPHINE [Suspect]
     Indication: BACK PAIN
     Route: 042
     Dates: start: 20070822, end: 20070823
  9. HEPARIN [Concomitant]
  10. EPTIFIBATIDE [Concomitant]
  11. CLOPIDOGREL [Concomitant]
     Route: 048
     Dates: start: 20070818, end: 20070822

REACTIONS (1)
  - HYPOTENSION [None]
